FAERS Safety Report 8858589 (Version 1)
Quarter: 2012Q4

REPORT INFORMATION
  Report Type: 
  Country: DE (occurrence: DE)
  Receive Date: 20121024
  Receipt Date: 20121024
  Transmission Date: 20130627
  Serious: Yes (Hospitalization)
  Sender: FDA-Public Use
  Company Number: GXKR2012DE003257

PATIENT
  Age: 58 Year
  Sex: Male
  Weight: 96 kg

DRUGS (3)
  1. AMIODARONE HYDROCHLORIDE [Suspect]
     Indication: ATRIAL FIBRILLATION
     Dosage: UNK UKN, UNK
     Dates: start: 201202, end: 201204
  2. LIPID MODIFYING AGENTS [Concomitant]
  3. CARDIAC THERAPY [Concomitant]
     Dosage: long-term medication

REACTIONS (2)
  - Nephropathy toxic [Recovering/Resolving]
  - Hepatotoxicity [Recovering/Resolving]
